FAERS Safety Report 4451011-1 (Version None)
Quarter: 2004Q3

REPORT INFORMATION
  Report Type: 
  Country: None (occurrence: None)
  Receive Date: 20040916
  Receipt Date: 20040621
  Transmission Date: 20050211
  Serious: Yes (Other)
  Sender: FDA-Public Use
  Company Number: US-BRISTOL-MYERS SQUIBB COMPANY-12620332

PATIENT
  Age: 49 Year
  Sex: Female
  Weight: 51 kg

DRUGS (5)
  1. STADOL [Suspect]
     Indication: MIGRAINE
     Dosage: THERAPY FROM THE EARLY 1990'S UNTIL EITHER 1999 OR 2000
     Route: 045
  2. STADOL [Suspect]
     Indication: MIGRAINE
     Dosage: THERAPY FROM THE EARLY 1990'S UNTIL EITHER 1999 OR 2000
  3. HORMONES [Concomitant]
  4. XANAX [Concomitant]
  5. SOMA [Concomitant]

REACTIONS (2)
  - DEPENDENCE [None]
  - SINUS DISORDER [None]
